FAERS Safety Report 8608069-5 (Version None)
Quarter: 2012Q3

REPORT INFORMATION
  Report Type: 
  Country: None (occurrence: None)
  Receive Date: 20120821
  Receipt Date: 20120815
  Transmission Date: 20120928
  Serious: No
  Sender: FDA-Public Use
  Company Number: US-PFIZER INC-2012199890

PATIENT
  Age: 5 Month
  Sex: Female

DRUGS (1)
  1. PEDIATRIC ADVIL [Suspect]
     Dosage: UNK

REACTIONS (1)
  - GENERALISED ERYTHEMA [None]
